FAERS Safety Report 20760980 (Version 1)
Quarter: 2022Q2

REPORT INFORMATION
  Report Type: Spontaneous
  Country: CA (occurrence: None)
  Receive Date: 20220428
  Receipt Date: 20220428
  Transmission Date: 20220721
  Serious: Yes (Hospitalization)
  Sender: FDA-Public Use
  Company Number: CA-ROCHE-3079014

PATIENT
  Age: 64 Year
  Sex: Female

DRUGS (2)
  1. OCRELIZUMAB [Suspect]
     Active Substance: OCRELIZUMAB
     Indication: Product used for unknown indication
     Route: 065
  2. DALFAMPRIDINE [Suspect]
     Active Substance: DALFAMPRIDINE
     Indication: Multiple sclerosis
     Route: 048

REACTIONS (4)
  - Drug ineffective [Unknown]
  - Gait inability [Recovered/Resolved]
  - Muscle spasticity [Recovered/Resolved]
  - Urinary incontinence [Recovered/Resolved]
